FAERS Safety Report 4983535-2 (Version None)
Quarter: 2006Q2

REPORT INFORMATION
  Report Type: 
  Country: None (occurrence: None)
  Receive Date: 20060419
  Receipt Date: 20060406
  Transmission Date: 20061013
  Serious: Yes (Other)
  Sender: FDA-Public Use
  Company Number: 2006049896

PATIENT
  Age: 52 Year
  Sex: Female

DRUGS (1)
  1. SULPERAZON  (SULBACTAM, CEFOPERAZONE) [Suspect]
     Indication: THROMBOPHLEBITIS
     Dosage: 1 GRAM, INTRAVENOUS
     Route: 042
     Dates: start: 20060403, end: 20060403

REACTIONS (3)
  - ASTHMA [None]
  - CONDITION AGGRAVATED [None]
  - SHOCK [None]
